FAERS Safety Report 6434279-1 (Version None)
Quarter: 2009Q4

REPORT INFORMATION
  Report Type: 
  Country: None (occurrence: None)
  Receive Date: 20091109
  Receipt Date: 20091109
  Transmission Date: 20100525
  Serious: No
  Sender: FDA-Public Use
  Company Number: None

PATIENT
  Age: 5 Year
  Sex: Female
  Weight: 14.9687 kg

DRUGS (1)
  1. AMPHETAMINES [Suspect]
     Indication: ATTENTION DEFICIT/HYPERACTIVITY DISORDER
     Dosage: 20MG 1/DAY ORAL (047)
     Route: 048

REACTIONS (5)
  - ABNORMAL BEHAVIOUR [None]
  - DRUG INEFFECTIVE [None]
  - IMPULSIVE BEHAVIOUR [None]
  - PRODUCT QUALITY ISSUE [None]
  - PSYCHOMOTOR HYPERACTIVITY [None]
